FAERS Safety Report 6182320-6 (Version None)
Quarter: 2009Q2

REPORT INFORMATION
  Report Type: 
  Country: None (occurrence: None)
  Receive Date: 20090505
  Receipt Date: 20090225
  Transmission Date: 20091009
  Serious: Yes (Life-Threatening, Hospitalization)
  Sender: FDA-Public Use
  Company Number: FR-GUERBET-20090046

PATIENT
  Age: 60 Year
  Sex: Female
  Weight: 45.3597 kg

DRUGS (1)
  1. HEXABRIX [Suspect]
     Indication: SPINAL MYELOGRAM
     Dosage: DOSAGE: 12, ML MILLILITRE (S), 1, 1, TOTAL INTRATHECAL
     Route: 037
     Dates: start: 20090224, end: 20090224

REACTIONS (9)
  - COMA [None]
  - DRUG ADMINISTRATION ERROR [None]
  - HYPERTHERMIA [None]
  - MYOCLONUS [None]
  - NEUROLOGICAL SYMPTOM [None]
  - OFF LABEL USE [None]
  - PRURITUS [None]
  - SOMNOLENCE [None]
  - STATUS EPILEPTICUS [None]
